FAERS Safety Report 9481143 (Version 1)
Quarter: 2013Q3

REPORT INFORMATION
  Report Type: Spontaneous
  Country: US (occurrence: US)
  Receive Date: 20130828
  Receipt Date: 20130828
  Transmission Date: 20140515
  Serious: Yes (Other)
  Sender: FDA-Public Use
  Company Number: US-AMGEN-KDL155701

PATIENT
  Age: 48 Year
  Sex: Female

DRUGS (2)
  1. ENBREL [Suspect]
     Indication: PSORIATIC ARTHROPATHY
     Dosage: 50 MG, QWK
     Route: 058
     Dates: start: 20050501
  2. SULFASALAZINE [Concomitant]
     Dosage: 500 MG, QOD
     Dates: start: 200509

REACTIONS (10)
  - Hepatomegaly [Unknown]
  - Palpitations [Unknown]
  - Heart rate irregular [Unknown]
  - Nodule [Unknown]
  - Psoriatic arthropathy [Unknown]
  - Condition aggravated [Unknown]
  - Pain [Unknown]
  - Hyperacusis [Unknown]
  - Tongue disorder [Unknown]
  - Ear disorder [Unknown]
